FAERS Safety Report 4667259-7 (Version None)
Quarter: 2005Q2

REPORT INFORMATION
  Report Type: 
  Country: None (occurrence: None)
  Receive Date: 20050520
  Receipt Date: 20040817
  Transmission Date: 20051028
  Serious: Yes (Other)
  Sender: FDA-Public Use
  Company Number: PHEH2004US08988

PATIENT
  Age: 79 Year
  Sex: Male

DRUGS (7)
  1. DECADRON [Concomitant]
     Dosage: .75 MG, QD
     Route: 048
  2. ZOMETA [Suspect]
     Indication: PROSTATE CANCER METASTATIC
     Dosage: 4 MG EVERY MONTH
     Route: 042
     Dates: start: 20030101, end: 20040801
  3. HYZAAR [Concomitant]
     Indication: HYPERTENSION
  4. ALLOPURINOL [Concomitant]
  5. MIRTAZAPINE [Concomitant]
  6. PROPOXYPHENE HCL [Concomitant]
     Indication: PAIN
  7. XYLOCAINE [Concomitant]

REACTIONS (8)
  - BONE DISORDER [None]
  - HAEMOGLOBIN DECREASED [None]
  - IMPAIRED HEALING [None]
  - JAW DISORDER [None]
  - OSTEONECROSIS [None]
  - RADIOTHERAPY [None]
  - TOOTH EXTRACTION [None]
  - WOUND DEBRIDEMENT [None]
